FAERS Safety Report 8236318-4 (Version None)
Quarter: 2012Q1

REPORT INFORMATION
  Report Type: 
  Country: None (occurrence: None)
  Receive Date: 20120327
  Receipt Date: 20120319
  Transmission Date: 20120608
  Serious: Yes (Hospitalization)
  Sender: FDA-Public Use
  Company Number: JP-JNJFOC-20120310976

PATIENT
  Age: 70 Year
  Sex: Female

DRUGS (4)
  1. SIMPONI [Suspect]
     Route: 058
     Dates: start: 20120209
  2. METHOTREXATE [Suspect]
     Indication: RHEUMATOID ARTHRITIS
     Dates: start: 20120209
  3. METHOTREXATE [Suspect]
     Dates: start: 20120112
  4. SIMPONI [Suspect]
     Indication: RHEUMATOID ARTHRITIS
     Route: 058
     Dates: start: 20120112

REACTIONS (1)
  - HERPES ZOSTER [None]
